FAERS Safety Report 16462998 (Version 1)
Quarter: 2019Q2

REPORT INFORMATION
  Report Type: Report from Study
  Country: CA (occurrence: CA)
  Receive Date: 20190621
  Receipt Date: 20190621
  Transmission Date: 20190711
  Serious: Yes (Other)
  Sender: FDA-Public Use
  Company Number: CA-AMGEN-CANNI2019074163

PATIENT
  Age: 36 Year
  Sex: Female

DRUGS (2)
  1. BOTOX [Concomitant]
     Active Substance: ONABOTULINUMTOXINA
     Indication: PRODUCT USED FOR UNKNOWN INDICATION
     Dosage: 300 DOSAGE FORM, Q3MO (300 U, Q3MO)
     Route: 065
     Dates: start: 20190124, end: 20190502
  2. AIMOVIG [Suspect]
     Active Substance: ERENUMAB-AOOE
     Indication: MIGRAINE
     Dosage: 140 MILLIGRAM
     Route: 058
     Dates: start: 20190303, end: 20190403

REACTIONS (9)
  - Flushing [Unknown]
  - Rash [Unknown]
  - Swollen tongue [Unknown]
  - Oedema peripheral [Unknown]
  - Swelling face [Unknown]
  - Lymphadenopathy [Unknown]
  - Hypersensitivity [Recovered/Resolved]
  - Erythema [Unknown]
  - Pruritus [Unknown]

NARRATIVE: CASE EVENT DATE: 20190303
